FAERS Safety Report 5602259-1 (Version None)
Quarter: 2008Q1

REPORT INFORMATION
  Report Type: 
  Country: None (occurrence: None)
  Receive Date: 20080122
  Receipt Date: 20080111
  Transmission Date: 20080703
  Serious: Yes (Hospitalization)
  Sender: FDA-Public Use
  Company Number: 163-21880-07120964

PATIENT
  Age: 63 Year
  Sex: Female
  Weight: 70.4 kg

DRUGS (3)
  1. REVLIMID [Suspect]
     Indication: HODGKIN'S DISEASE
     Dosage: 25 MG, DAILY, ORAL
     Route: 048
     Dates: start: 20071203, end: 20071217
  2. LEVOTHYROXINE SODIUM [Concomitant]
  3. LEXAPRO [Concomitant]

REACTIONS (7)
  - ABDOMINAL PAIN [None]
  - ALANINE AMINOTRANSFERASE INCREASED [None]
  - ASPARTATE AMINOTRANSFERASE INCREASED [None]
  - BLOOD ALKALINE PHOSPHATASE INCREASED [None]
  - BLOOD BILIRUBIN INCREASED [None]
  - CONSTIPATION [None]
  - HODGKIN'S DISEASE NODULAR SCLEROSIS RECURRENT [None]
